FAERS Safety Report 23057728 (Version 8)
Quarter: 2025Q1

REPORT INFORMATION
  Report Type: Report from Study
  Country: ES (occurrence: ES)
  Receive Date: 20231012
  Receipt Date: 20250217
  Transmission Date: 20250409
  Serious: Yes (Hospitalization, Other)
  Sender: TAKEDA
  Company Number: ES-TAKEDA-2023TUS060176

PATIENT
  Age: 6 Year
  Sex: Male

DRUGS (12)
  1. TEDUGLUTIDE [Suspect]
     Active Substance: TEDUGLUTIDE
     Indication: Short-bowel syndrome
     Dosage: 0.8 MILLIGRAM, QD
     Dates: start: 20210610, end: 20230203
  2. TEDUGLUTIDE [Suspect]
     Active Substance: TEDUGLUTIDE
     Dosage: 1 MILLIGRAM, QD
     Dates: start: 20230203, end: 20250124
  3. TEDUGLUTIDE [Suspect]
     Active Substance: TEDUGLUTIDE
     Dosage: 1.1 MILLIGRAM, QD
     Dates: start: 20250124
  4. TEDUGLUTIDE [Suspect]
     Active Substance: TEDUGLUTIDE
  5. VENOFER [Concomitant]
     Active Substance: IRON SUCROSE
     Indication: Iron deficiency
     Dosage: 100 MILLIGRAM, SINGLE
     Dates: start: 20200821, end: 20200821
  6. VENOFER [Concomitant]
     Active Substance: IRON SUCROSE
     Dosage: 100 MILLIGRAM, SINGLE
     Dates: start: 20210611, end: 20210611
  7. IRON [Concomitant]
     Active Substance: IRON
     Indication: Iron deficiency
     Dosage: 282 MILLILITER, QD
     Dates: start: 20230911, end: 20230911
  8. AZITHROMYCIN [Concomitant]
     Active Substance: AZITHROMYCIN
     Indication: Gastroenteritis
  9. FISIOGEN FERRO FORTE [Concomitant]
     Indication: Iron deficiency
     Dosage: 800 INTERNATIONAL UNIT, QD
     Dates: start: 20230823
  10. Prodefen plus [Concomitant]
     Indication: Gastrointestinal disorder
     Dates: start: 20230823, end: 20231215
  11. RIFAXIMIN [Concomitant]
     Active Substance: RIFAXIMIN
     Indication: Gastrointestinal disorder
     Dates: start: 20230823, end: 20231215
  12. METRONIDAZOLE [Concomitant]
     Active Substance: METRONIDAZOLE
     Indication: Gastrointestinal disorder
     Dates: start: 20230823, end: 20231215

REACTIONS (13)
  - Device related sepsis [Recovered/Resolved]
  - Enterobacter infection [Recovered/Resolved]
  - Gastroenteritis cryptosporidial [Recovered/Resolved]
  - Thrombosis [Recovered/Resolved]
  - Influenza [Recovered/Resolved]
  - Vitamin D deficiency [Recovered/Resolved]
  - Iron deficiency [Recovered/Resolved]
  - Gastroenteritis [Recovered/Resolved]
  - Anaemia [Recovered/Resolved]
  - Blood thyroid stimulating hormone increased [Recovered/Resolved]
  - Eosinophilia [Recovered/Resolved]
  - Metabolic acidosis [Recovered/Resolved]
  - Hypophosphataemia [Recovered/Resolved]

NARRATIVE: CASE EVENT DATE: 20230522
